FAERS Safety Report 10301205 (Version 1)
Quarter: 2014Q3

REPORT INFORMATION
  Report Type: Spontaneous
  Country: DE (occurrence: TH)
  Receive Date: 20140714
  Receipt Date: 20140714
  Transmission Date: 20150326
  Serious: Yes (Hospitalization)
  Sender: FDA-Public Use
  Company Number: DE-JNJFOC-20140703913

PATIENT
  Sex: Female

DRUGS (1)
  1. NIZORAL [Suspect]
     Active Substance: KETOCONAZOLE
     Indication: VULVOVAGINAL MYCOTIC INFECTION
     Route: 048

REACTIONS (7)
  - Nausea [Recovering/Resolving]
  - Rash [Recovering/Resolving]
  - Heart rate irregular [Recovering/Resolving]
  - Thyroid disorder [Recovering/Resolving]
  - Pyrexia [Recovering/Resolving]
  - Constipation [Recovering/Resolving]
  - Chills [Recovering/Resolving]
